FAERS Safety Report 8135647-2 (Version None)
Quarter: 2012Q1

REPORT INFORMATION
  Report Type: 
  Country: None (occurrence: None)
  Receive Date: 20120214
  Receipt Date: 20120207
  Transmission Date: 20120608
  Serious: Yes (Hospitalization, Disabling)
  Sender: FDA-Public Use
  Company Number: PHHY2012CA009075

PATIENT
  Sex: Female

DRUGS (9)
  1. ZOLEDRONOC ACID [Suspect]
     Indication: OSTEOPOROSIS
     Dosage: 5 MG
     Route: 042
     Dates: start: 20100423
  2. CALCIUM WITH VITAMIN D [Concomitant]
     Dosage: UNK UKN, BID
  3. SYNTHROID [Concomitant]
     Dosage: 0.88 UKN, DAILY
  4. LOPRESSOR [Concomitant]
     Dosage: 25 UKN, BID
  5. NITROGLYCERIN [Concomitant]
     Dosage: 0.2 UKN, DAILY
  6. PRANOLOL [Concomitant]
     Dosage: 20 UKN, DAILY
  7. ZOLEDRONOC ACID [Suspect]
     Dosage: 5 MG
     Route: 042
     Dates: start: 20110426
  8. ZOLOFT [Concomitant]
     Dosage: UNK UKN, DAILY
  9. ASPIRIN [Concomitant]
     Dosage: 80 UKN, DAILY

REACTIONS (2)
  - DELIRIUM [None]
  - CONFUSIONAL STATE [None]
